FAERS Safety Report 4884173-2 (Version None)
Quarter: 2005Q4

REPORT INFORMATION
  Report Type: 
  Country: None (occurrence: None)
  Receive Date: 20051201
  Receipt Date: 20050908
  Transmission Date: 20060501
  Serious: No
  Sender: FDA-Public Use
  Company Number: 2005PV001972

PATIENT
  Age: 85 Year
  Sex: Male
  Weight: 113.3993 kg

DRUGS (4)
  1. BYETTA [Suspect]
     Indication: DIABETES MELLITUS NON-INSULIN-DEPENDENT
     Dosage: 10 MCG; BID; SC
     Route: 058
     Dates: start: 20050601, end: 20050908
  2. AVANDIA [Concomitant]
  3. GLYBURIDE [Concomitant]
  4. ISOSORBIDE [Concomitant]

REACTIONS (5)
  - FLUSHING [None]
  - HEAD DISCOMFORT [None]
  - HEADACHE [None]
  - VISUAL ACUITY REDUCED [None]
  - WEIGHT DECREASED [None]
